FAERS Safety Report 5604692-0 (Version None)
Quarter: 2008Q1

REPORT INFORMATION
  Report Type: 
  Country: None (occurrence: None)
  Receive Date: 20080128
  Receipt Date: 20080118
  Transmission Date: 20080703
  Serious: Yes (Hospitalization)
  Sender: FDA-Public Use
  Company Number: DE-AVENTIS-200711535DE

PATIENT
  Age: 61 Year
  Sex: Female
  Weight: 73 kg

DRUGS (8)
  1. ARAVA [Suspect]
     Indication: RHEUMATOID ARTHRITIS
     Route: 048
     Dates: start: 20050720, end: 20070518
  2. CALCIGEN D [Concomitant]
     Dosage: DOSE: 2X1 DAILY
     Route: 048
  3. FUROSEMIDE [Concomitant]
     Dosage: DOSE: 0.5 DAILY
  4. ALLOPURINOL [Concomitant]
  5. ESOMEPRAZOLE MAGNESIUM [Concomitant]
  6. KALINOR-BRAUSETABLETTEN [Concomitant]
     Dosage: DOSE: 1 DAILY
     Route: 048
  7. PREDNISOLONE [Concomitant]
  8. ALENDRONIC ACID [Concomitant]

REACTIONS (2)
  - GAMMA-GLUTAMYLTRANSFERASE INCREASED [None]
  - GRANULOMATOUS LIVER DISEASE [None]
